FAERS Safety Report 15243914 (Version 2)
Quarter: 2018Q3

REPORT INFORMATION
  Report Type: Spontaneous
  Country: US (occurrence: US)
  Receive Date: 20180806
  Receipt Date: 20180813
  Transmission Date: 20181010
  Serious: No
  Sender: FDA-Public Use
  Company Number: US-SA-2018SA211569

PATIENT
  Age: 53 Year
  Sex: Male

DRUGS (2)
  1. DUPIXENT [Suspect]
     Active Substance: DUPILUMAB
     Indication: ECZEMA
  2. DUPIXENT [Suspect]
     Active Substance: DUPILUMAB
     Indication: DERMATITIS ATOPIC
     Dosage: UNK
     Dates: start: 20171011

REACTIONS (11)
  - Skin exfoliation [Unknown]
  - Feeling hot [Unknown]
  - Malaise [Unknown]
  - Product use issue [Unknown]
  - Skin reaction [Unknown]
  - Hypersensitivity [Unknown]
  - Hyperhidrosis [Unknown]
  - Injection site pain [Unknown]
  - Injection site irritation [Unknown]
  - Scratch [Unknown]
  - Swelling [Unknown]

NARRATIVE: CASE EVENT DATE: 20180801
